FAERS Safety Report 8942847 (Version 1)
Quarter: 2012Q4

REPORT INFORMATION
  Report Type: Spontaneous
  Country: AT (occurrence: None)
  Receive Date: 20121123
  Receipt Date: 20121123
  Transmission Date: 20130627
  Serious: Yes (Hospitalization)
  Sender: FDA-Public Use
  Company Number: DSA_61025_2012

PATIENT
  Age: 59 Year
  Sex: Male

DRUGS (11)
  1. FLUOROURACIL (FLUOROURACIL) [Suspect]
     Indication: COLORECTAL CANCER METASTATIC
     Dates: start: 20120928
  2. FLUOROURACIL (FLUOROURACIL) [Suspect]
     Indication: COLORECTAL CANCER METASTATIC
     Dates: start: 20120921, end: 20120921
  3. AFLIBERCEPT [Suspect]
     Indication: COLORECTAL CANCER METASTATIC
     Dates: start: 20120928
  4. AFLIBERCEPT [Suspect]
     Indication: COLORECTAL CANCER METASTATIC
     Dates: start: 20120621, end: 20120621
  5. IRINOTECAN [Suspect]
     Indication: COLORECTAL CANCER METASTATIC
     Dates: start: 20120928
  6. IRINOTECAN [Suspect]
     Indication: COLORECTAL CANCER METASTATIC
     Dates: start: 20120921, end: 20120921
  7. LEUCOVORIN [Suspect]
     Indication: COLORECTAL CANCER METASTATIC
     Dates: start: 20120928
  8. LEUCOVORIN [Suspect]
     Indication: COLORECTAL CANCER METASTATIC
     Dates: start: 20120621, end: 20120621
  9. ACEMIN /00894001/ [Concomitant]
  10. PANTOPRAZOLE [Concomitant]
  11. AMLODIPINE [Concomitant]

REACTIONS (1)
  - Colonic fistula [None]
